FAERS Safety Report 10038275 (Version 1)
Quarter: 2014Q1

REPORT INFORMATION
  Report Type: Spontaneous
  Country: TH (occurrence: TH)
  Receive Date: 20140326
  Receipt Date: 20140326
  Transmission Date: 20141002
  Serious: Yes (Death, Hospitalization)
  Sender: FDA-Public Use
  Company Number: TH-BAXTER-2014BAX014882

PATIENT
  Sex: Male

DRUGS (1)
  1. DIANEAL LOW CALCIUM (2.5 PERCENT MEQ/L) PERITONEAL DIALYSIS SOL WITH 1 [Suspect]
     Indication: PERITONEAL DIALYSIS
     Route: 033
     Dates: start: 20130406, end: 20140308

REACTIONS (3)
  - Septic shock [Fatal]
  - Sepsis [Unknown]
  - Pneumonia [Unknown]
